FAERS Safety Report 6020645-5 (Version None)
Quarter: 2008Q4

REPORT INFORMATION
  Report Type: 
  Country: None (occurrence: None)
  Receive Date: 20081222
  Receipt Date: 20081209
  Transmission Date: 20090506
  Serious: Yes (Death, Hospitalization, Other)
  Sender: FDA-Public Use
  Company Number: 55072

PATIENT
  Age: 29 Year
  Sex: Male

DRUGS (4)
  1. BLEOMYCIN [Suspect]
     Indication: METASTASES TO MENINGES
     Dosage: 30MG IV; DAYS 2, 8, AND 15
     Route: 042
  2. BLEOMYCIN [Suspect]
     Indication: SEMINOMA
     Dosage: 30MG IV; DAYS 2, 8, AND 15
     Route: 042
  3. CISPLATIN [Suspect]
     Indication: METASTASES TO MENINGES
     Dosage: 20MG/M2
  4. CISPLATIN [Suspect]
     Indication: SEMINOMA
     Dosage: 20MG/M2

REACTIONS (11)
  - ABNORMAL BEHAVIOUR [None]
  - ASTHENIA [None]
  - CHLOROMA [None]
  - COMA [None]
  - CONFUSIONAL STATE [None]
  - HEADACHE [None]
  - HEMIPLEGIA [None]
  - HYPERSOMNIA-BULIMIA SYNDROME [None]
  - PYREXIA [None]
  - SARCOMA [None]
  - VASCULITIS [None]
